FAERS Safety Report 25829076 (Version 1)
Quarter: 2025Q3

REPORT INFORMATION
  Report Type: Spontaneous
  Country: US (occurrence: US)
  Receive Date: 20250922
  Receipt Date: 20250922
  Transmission Date: 20251021
  Serious: Yes (Other)
  Sender: AUROBINDO
  Company Number: US-AUROBINDO-AUR-APL-2025-047608

PATIENT
  Age: 35 Year
  Sex: Female
  Weight: 72.57 kg

DRUGS (2)
  1. GABAPENTIN [Suspect]
     Active Substance: GABAPENTIN
     Indication: Fibromyalgia
     Dosage: UNK UNK, ONCE A DAY (STARTED 3 MONTHS AGO)
     Route: 048
  2. GABAPENTIN [Suspect]
     Active Substance: GABAPENTIN
     Indication: Pain

REACTIONS (3)
  - Choking [Unknown]
  - Product solubility abnormal [Unknown]
  - Product coating issue [Unknown]
